FAERS Safety Report 8925214 (Version 2)
Quarter: 2013Q1

REPORT INFORMATION
  Report Type: Spontaneous
  Country: GB (occurrence: GB)
  Receive Date: 20121126
  Receipt Date: 20130204
  Transmission Date: 20140127
  Serious: No
  Sender: FDA-Public Use
  Company Number: GB-ASTELLAS-2012EU010077

PATIENT
  Age: 66 Year
  Sex: Male
  Weight: 110 kg

DRUGS (4)
  1. VESICARE [Suspect]
     Indication: POLLAKIURIA
     Dosage: 5 MG, UID/QD
     Route: 048
     Dates: start: 20120830
  2. VESICARE [Suspect]
     Indication: HYPERTONIC BLADDER
  3. RAMIPRIL [Concomitant]
     Indication: BLOOD PRESSURE
     Dosage: 2.5 MG, UID/QD
     Route: 048
     Dates: start: 20090722
  4. SIMVASTATIN [Concomitant]
     Indication: BLOOD CHOLESTEROL
     Dosage: 40 MG, UID/QD
     Route: 048
     Dates: start: 20081222

REACTIONS (1)
  - Erectile dysfunction [Unknown]
